FAERS Safety Report 8414156-7 (Version None)
Quarter: 2012Q2

REPORT INFORMATION
  Report Type: 
  Country: None (occurrence: None)
  Receive Date: 20120605
  Receipt Date: 20120529
  Transmission Date: 20120825
  Serious: Yes (Death)
  Sender: FDA-Public Use
  Company Number: US-BRISTOL-MYERS SQUIBB COMPANY-16641300

PATIENT
  Sex: Male

DRUGS (1)
  1. ORENCIA [Suspect]
     Route: 058
     Dates: start: 20120312

REACTIONS (1)
  - MYOCARDIAL INFARCTION [None]
